FAERS Safety Report 19535375 (Version 3)
Quarter: 2021Q3

REPORT INFORMATION
  Report Type: Spontaneous
  Country: US (occurrence: US)
  Receive Date: 20210713
  Receipt Date: 20210811
  Transmission Date: 20211014
  Serious: No
  Sender: FDA-Public Use
  Company Number: US-FRESENIUS KABI-FK202107181

PATIENT
  Age: 57 Year
  Sex: Female
  Weight: 76 kg

DRUGS (3)
  1. SMOFLIPID [Suspect]
     Active Substance: FISH OIL\MEDIUM-CHAIN TRIGLYCERIDES\OLIVE OIL\SOYBEAN OIL
     Dosage: APPROXIMATELY 0.45 G/KG/DAY
     Route: 065
     Dates: start: 20210713
  2. SMOFLIPID [Suspect]
     Active Substance: FISH OIL\MEDIUM-CHAIN TRIGLYCERIDES\OLIVE OIL\SOYBEAN OIL
     Indication: PARENTERAL NUTRITION
     Dosage: 1 G/KG/DAY, 12?HOUR CYCLIC INFUSIONS
     Route: 065
     Dates: start: 20210507, end: 20210712
  3. INTRALIPID [Suspect]
     Active Substance: EGG PHOSPHOLIPIDS\GLYCERIN\SOYBEAN OIL
     Indication: PARENTERAL NUTRITION
     Dosage: UNKNOWN
     Route: 065
     Dates: start: 202104, end: 202105

REACTIONS (3)
  - Cholestasis [Unknown]
  - Jaundice [Unknown]
  - Hyperbilirubinaemia [Unknown]

NARRATIVE: CASE EVENT DATE: 20210419
